FAERS Safety Report 10209493 (Version 2)
Quarter: 2014Q2

REPORT INFORMATION
  Report Type: Spontaneous
  Country: CH (occurrence: CH)
  Receive Date: 20140601
  Receipt Date: 20140613
  Transmission Date: 20141212
  Serious: Yes (Life-Threatening)
  Sender: FDA-Public Use
  Company Number: PHHY2014CH065395

PATIENT
  Age: 14 Year
  Sex: Female

DRUGS (17)
  1. TEGRETOL [Suspect]
     Indication: STATUS EPILEPTICUS
     Dosage: 400 MG, QD
     Route: 048
     Dates: start: 20140225, end: 20140303
  2. BACTRIM [Suspect]
     Dosage: UNK UKN, UNK
     Route: 048
     Dates: end: 20140311
  3. TAZOBAC [Suspect]
     Dosage: UNK UKN, UNK
     Route: 042
     Dates: end: 20140306
  4. ISONIAZID W/PYRAZINAMIDE/RIFAMPICIN [Suspect]
     Dosage: UNK UKN, UNK
     Route: 048
     Dates: end: 20140326
  5. ETHAMBUTOL [Suspect]
     Dosage: UNK UKN, UNK
     Route: 048
     Dates: end: 20140326
  6. SOLU-MEDROL [Concomitant]
     Dosage: 40 MG, TID
  7. KETOPROFEN [Concomitant]
     Dosage: UNK UKN, UNK
  8. CEFUROXIME [Concomitant]
     Dosage: 75 MG, TID
     Route: 042
  9. CIPROFLOXACIN [Concomitant]
     Dosage: UNK UKN, UNK
  10. RABEPRAZOL [Concomitant]
     Dosage: UNK UKN, UNK
  11. OME-Q//OMEPRAZOLE [Concomitant]
     Dosage: 40 MG, QD
  12. AMLODIPINE [Concomitant]
     Dosage: 5 MG, QD
  13. VANCOMYCINE [Concomitant]
     Dosage: UNK UKN, UNK
  14. CASPOFUNGIN [Concomitant]
     Dosage: UNK UKN, UNK
  15. MEROPENEM [Concomitant]
     Dosage: UNK UKN, UNK
  16. AMBISOME [Concomitant]
     Dosage: UNK UKN, UNK
  17. ENDOXAN [Concomitant]
     Dosage: UNK UKN, UNK

REACTIONS (1)
  - Pulmonary eosinophilia [Not Recovered/Not Resolved]
